FAERS Safety Report 4910679-3 (Version None)
Quarter: 2006Q1

REPORT INFORMATION
  Report Type: 
  Country: None (occurrence: None)
  Receive Date: 20060210
  Receipt Date: 20060210
  Transmission Date: 20060701
  Serious: Yes (Disabling)
  Sender: FDA-Public Use
  Company Number: None

PATIENT
  Age: 49 Year
  Sex: Female
  Weight: 58.9676 kg

DRUGS (3)
  1. ZICAM NO-DRIP LIQUID NASAL GEL [Suspect]
     Indication: NASOPHARYNGITIS
     Dosage: 2 PUMPS EN (EACH NOSTRIL) QD IN (INTRA-NASALLY)
     Route: 045
     Dates: start: 20051208
  2. PROZAC [Concomitant]
  3. NEXIUM [Concomitant]

REACTIONS (4)
  - AGEUSIA [None]
  - ANOSMIA [None]
  - BRONCHITIS [None]
  - NASAL DISCOMFORT [None]
